FAERS Safety Report 24829076 (Version 1)
Quarter: 2025Q1

REPORT INFORMATION
  Report Type: Report from Study
  Country: US (occurrence: US)
  Receive Date: 20250110
  Receipt Date: 20250110
  Transmission Date: 20250409
  Serious: Yes (Other)
  Sender: UCB
  Company Number: US-UCBSA-2024052693

PATIENT
  Age: 59 Year
  Sex: Male

DRUGS (2)
  1. LACOSAMIDE [Suspect]
     Active Substance: LACOSAMIDE
     Indication: Seizure
     Dosage: 200 MILLIGRAM 1 TABLET, 2X/DAY (BID)
  2. LACOSAMIDE [Suspect]
     Active Substance: LACOSAMIDE
     Dosage: 250 MILLIGRAM, 1 VIMPAT 200MG TABLET AND 1 VIMPAT 50MG TABLET TOGETHER, FOR A TOTAL OF 250MG TWICE A
     Dates: start: 202103

REACTIONS (2)
  - Seizure [Not Recovered/Not Resolved]
  - Radiation necrosis [Not Recovered/Not Resolved]

NARRATIVE: CASE EVENT DATE: 20240927
